FAERS Safety Report 7561184-X (Version None)
Quarter: 2011Q2

REPORT INFORMATION
  Report Type: 
  Country: None (occurrence: None)
  Receive Date: 20110621
  Receipt Date: 20110225
  Transmission Date: 20111010
  Serious: No
  Sender: FDA-Public Use
  Company Number: US-ASTRAZENECA-2011SE10719

PATIENT
  Age: 80 Year
  Sex: Female
  Weight: 39 kg

DRUGS (5)
  1. AZMACORT [Concomitant]
  2. BUDESONIDE [Suspect]
     Route: 065
  3. SPIRIVA [Concomitant]
  4. ADVAIR DISKUS 100/50 [Concomitant]
  5. PULMICORT [Suspect]
     Indication: CHRONIC OBSTRUCTIVE PULMONARY DISEASE
     Dosage: BID
     Route: 055
     Dates: start: 20020101

REACTIONS (6)
  - TINEA PEDIS [None]
  - CHRONIC OBSTRUCTIVE PULMONARY DISEASE [None]
  - GLAUCOMA [None]
  - TREATMENT NONCOMPLIANCE [None]
  - DRUG DOSE OMISSION [None]
  - CREPITATIONS [None]
